FAERS Safety Report 7027182-X (Version None)
Quarter: 2010Q4

REPORT INFORMATION
  Report Type: 
  Country: None (occurrence: None)
  Receive Date: 20101004
  Receipt Date: 20100928
  Transmission Date: 20110411
  Serious: No
  Sender: FDA-Public Use
  Company Number: US-PFIZER INC-2010094058

PATIENT
  Sex: Male
  Weight: 78.005 kg

DRUGS (2)
  1. LIPITOR [Suspect]
     Indication: HYPERLIPIDAEMIA
     Dosage: 40 MG, DAILY EVERY EVENING
     Route: 048
     Dates: start: 20060101
  2. WELLBUTRIN [Concomitant]
     Dosage: UNK

REACTIONS (3)
  - FATIGUE [None]
  - MUSCLE DISORDER [None]
  - MYALGIA [None]
